FAERS Safety Report 11030428 (Version 2)
Quarter: 2015Q4

REPORT INFORMATION
  Report Type: Report from Study
  Country: AU (occurrence: AU)
  Receive Date: 20150415
  Receipt Date: 20151214
  Transmission Date: 20160304
  Serious: Yes (Hospitalization)
  Sender: FDA-Public Use
  Company Number: PHHY2015AU043372

PATIENT
  Sex: Male

DRUGS (1)
  1. CLOZARIL [Suspect]
     Active Substance: CLOZAPINE
     Indication: SCHIZOPHRENIA
     Dosage: 350 OT
     Route: 048
     Dates: start: 19950123

REACTIONS (2)
  - Schizophrenia [Unknown]
  - Urinary tract infection [Unknown]
